FAERS Safety Report 10219290 (Version 1)
Quarter: 2014Q2

REPORT INFORMATION
  Report Type: Spontaneous
  Country: AU (occurrence: None)
  Receive Date: 20140603
  Receipt Date: 20140603
  Transmission Date: 20141212
  Serious: Yes (Other)
  Sender: FDA-Public Use
  Company Number: 2014P1004590

PATIENT
  Age: 41 Year
  Sex: Male

DRUGS (2)
  1. AMPHETAMINE [Suspect]
  2. DROPERIDOL [Suspect]
     Indication: SEDATION

REACTIONS (4)
  - Hallucination [None]
  - Drug screen positive [None]
  - Heart rate decreased [None]
  - Electrocardiogram QT prolonged [None]
